FAERS Safety Report 10311556 (Version 1)
Quarter: 2014Q3

REPORT INFORMATION
  Report Type: Spontaneous
  Country: GB (occurrence: GB)
  Receive Date: 20140717
  Receipt Date: 20140717
  Transmission Date: 20150326
  Serious: Yes (Other)
  Sender: FDA-Public Use
  Company Number: PHHY2014GB085573

PATIENT
  Age: 63 Year
  Sex: Male
  Weight: 125 kg

DRUGS (13)
  1. NYSTAN [Concomitant]
     Active Substance: NYSTATIN
     Dates: start: 20140627
  2. GLICLAZIDE [Concomitant]
     Active Substance: GLICLAZIDE
     Dates: start: 20140305, end: 20140625
  3. ORLISTAT [Concomitant]
     Active Substance: ORLISTAT
     Dates: start: 20140403, end: 20140528
  4. RAMIPRIL. [Concomitant]
     Active Substance: RAMIPRIL
     Dates: start: 20140305, end: 20140625
  5. VICTOZA [Concomitant]
     Active Substance: LIRAGLUTIDE
     Dates: start: 20140403, end: 20140625
  6. PIROXICAM. [Concomitant]
     Active Substance: PIROXICAM
     Dates: start: 20140403, end: 20140501
  7. QUININE [Concomitant]
     Active Substance: QUININE
     Dates: start: 20140305, end: 20140625
  8. SIMVASTATIN. [Concomitant]
     Active Substance: SIMVASTATIN
     Dates: start: 20140305, end: 20140625
  9. GABAPENTIN. [Suspect]
     Active Substance: GABAPENTIN
     Dates: start: 20140610
  10. MELOXICAM. [Concomitant]
     Active Substance: MELOXICAM
     Dates: start: 20140305, end: 20140625
  11. TRAMADOL [Concomitant]
     Active Substance: TRAMADOL
     Dates: start: 20140305, end: 20140625
  12. METFORMIN [Concomitant]
     Active Substance: METFORMIN HYDROCHLORIDE
     Dates: start: 20140305, end: 20140625
  13. PARACETAMOL [Concomitant]
     Active Substance: ACETAMINOPHEN
     Dates: start: 20140403, end: 20140625

REACTIONS (5)
  - Cough [Recovered/Resolved]
  - Lip swelling [Recovering/Resolving]
  - Mouth swelling [Recovering/Resolving]
  - Oral candidiasis [Recovering/Resolving]
  - Oropharyngeal pain [Recovered/Resolved]

NARRATIVE: CASE EVENT DATE: 20140701
